FAERS Safety Report 9514221 (Version 1)
Quarter: 2013Q3

REPORT INFORMATION
  Report Type: Spontaneous
  Country: US (occurrence: US)
  Receive Date: 20130910
  Receipt Date: 20130910
  Transmission Date: 20140515
  Serious: No
  Sender: FDA-Public Use
  Company Number: -SAAVPROD-BMS19001478

PATIENT
  Age: 69 Year
  Sex: Female

DRUGS (1)
  1. AVAPRO TABS 150 MG [Suspect]
     Indication: BLOOD PRESSURE
     Dosage: IMPRINT:2772
     Dates: start: 20130308

REACTIONS (2)
  - Blood pressure increased [Recovered/Resolved]
  - Drug ineffective [Unknown]
